FAERS Safety Report 6100228-9 (Version None)
Quarter: 2009Q1

REPORT INFORMATION
  Report Type: 
  Country: None (occurrence: None)
  Receive Date: 20090303
  Receipt Date: 20090226
  Transmission Date: 20090719
  Serious: Yes (Other)
  Sender: FDA-Public Use
  Company Number: US-ASTRAZENECA-2009UW05336

PATIENT
  Sex: Female

DRUGS (3)
  1. NEXIUM [Suspect]
     Route: 048
  2. ZOCOR [Concomitant]
  3. AMLODIPINE [Concomitant]

REACTIONS (2)
  - ANEURYSM [None]
  - CEREBROVASCULAR ACCIDENT [None]
